FAERS Safety Report 14970093 (Version 1)
Quarter: 2018Q2

REPORT INFORMATION
  Report Type: Spontaneous
  Country: US (occurrence: US)
  Receive Date: 20180530
  Receipt Date: 20180530
  Transmission Date: 20180711
  Serious: No
  Sender: FDA-Public Use
  Company Number: US-KADMON PHARMACEUTICALS, LLC-KAD201708-000972

PATIENT
  Age: 65 Year
  Sex: Male

DRUGS (5)
  1. PEGINTERFERON ALFA-2A. [Suspect]
     Active Substance: PEGINTERFERON ALFA-2A
     Indication: HEPATITIS C
     Route: 058
     Dates: start: 20130514
  2. LUPRON [Concomitant]
     Active Substance: LEUPROLIDE ACETATE
  3. RIBASPHERE [Suspect]
     Active Substance: RIBAVIRIN
     Indication: HEPATITIS C
     Route: 048
     Dates: start: 20130514
  4. TELAPREVIR [Suspect]
     Active Substance: TELAPREVIR
     Indication: HEPATITIS C
     Dosage: PILL
     Dates: start: 20130514
  5. BICALUTAMIDE. [Concomitant]
     Active Substance: BICALUTAMIDE

REACTIONS (6)
  - Rash [Unknown]
  - Pruritus [Unknown]
  - Malaise [Unknown]
  - Oral herpes [Unknown]
  - Fatigue [Unknown]
  - Stomatitis [Unknown]
